FAERS Safety Report 5087135-8 (Version None)
Quarter: 2006Q3

REPORT INFORMATION
  Report Type: 
  Country: None (occurrence: None)
  Receive Date: 20060821
  Receipt Date: 20060810
  Transmission Date: 20061208
  Serious: Yes (Other)
  Sender: FDA-Public Use
  Company Number: DE-2006-022879

PATIENT
  Age: 65 Year

DRUGS (1)
  1. MAGNEVIST [Suspect]
     Indication: NUCLEAR MAGNETIC RESONANCE IMAGING
     Dosage: 1 DOSE
     Dates: start: 20060809, end: 20060809

REACTIONS (3)
  - DYSPNOEA [None]
  - NUCLEAR MAGNETIC RESONANCE IMAGING THORACIC ABNORMAL [None]
  - PLEURAL EFFUSION [None]
